FAERS Safety Report 8452154-8 (Version None)
Quarter: 2012Q2

REPORT INFORMATION
  Report Type: 
  Country: None (occurrence: None)
  Receive Date: 20120620
  Receipt Date: 20120402
  Transmission Date: 20120825
  Serious: No
  Sender: FDA-Public Use
  Company Number: US-VERTEX PHARMACEUTICALS INC.-AE-2012-004682

PATIENT
  Sex: Male
  Weight: 97.61 kg

DRUGS (6)
  1. RIBAVIRIN [Concomitant]
     Indication: HEPATITIS C
     Route: 048
     Dates: start: 20120224
  2. INCIVEK [Suspect]
     Indication: HEPATITIS C
     Route: 048
     Dates: start: 20120224
  3. PRILOSEC [Concomitant]
     Indication: GASTROOESOPHAGEAL REFLUX DISEASE
     Route: 048
  4. PEGASYS [Concomitant]
     Indication: HEPATITIS C
     Route: 058
     Dates: start: 20120224
  5. TOPROL-XL [Concomitant]
     Indication: HYPERTENSION
     Route: 048
  6. ELTROMBOPAG [Concomitant]
     Indication: PLATELET COUNT DECREASED
     Route: 048

REACTIONS (2)
  - PLATELET COUNT DECREASED [None]
  - VOMITING [None]
